FAERS Safety Report 6836991-9 (Version None)
Quarter: 2010Q3

REPORT INFORMATION
  Report Type: 
  Country: None (occurrence: None)
  Receive Date: 20100708
  Receipt Date: 20100622
  Transmission Date: 20110219
  Serious: Yes (Other)
  Sender: FDA-Public Use
  Company Number: 014964

PATIENT
  Age: 37 Year
  Sex: Female

DRUGS (4)
  1. KEPPRA [Suspect]
     Dosage: (750 MG BID ORAL)
     Route: 048
  2. LYRICA [Suspect]
     Dosage: (150 MG BID ORAL)
     Route: 048
     Dates: start: 20080101
  3. TEGRETOL [Suspect]
     Indication: EPILEPSY
  4. ATIVAN [Concomitant]

REACTIONS (7)
  - COMPLEX PARTIAL SEIZURES [None]
  - DIZZINESS [None]
  - EAR DISORDER [None]
  - FURUNCLE [None]
  - VIRAL INFECTION [None]
  - VISION BLURRED [None]
  - WEIGHT INCREASED [None]
